FAERS Safety Report 25792425 (Version 1)
Quarter: 2025Q3

REPORT INFORMATION
  Report Type: Spontaneous
  Country: GB (occurrence: GB)
  Receive Date: 20250911
  Receipt Date: 20250911
  Transmission Date: 20251021
  Serious: Yes (Hospitalization, Other)
  Sender: AMGEN
  Company Number: GB-AMGEN-GBRSP2025176070

PATIENT
  Age: 4 Year
  Sex: Male

DRUGS (11)
  1. ADALIMUMAB [Suspect]
     Active Substance: ADALIMUMAB
     Indication: Pyoderma gangrenosum
     Route: 065
  2. CORTICOSTEROID NOS [Concomitant]
     Active Substance: CORTICOSTEROID NOS
     Route: 048
  3. METHOTREXATE [Concomitant]
     Active Substance: METHOTREXATE
  4. CYCLOSPORINE [Concomitant]
     Active Substance: CYCLOSPORINE
  5. Immunoglobulin [Concomitant]
     Route: 040
  6. MYCOPHENOLATE MOFETIL [Concomitant]
     Active Substance: MYCOPHENOLATE MOFETIL
  7. DAPSONE [Concomitant]
     Active Substance: DAPSONE
  8. COLCHICINE [Concomitant]
     Active Substance: COLCHICINE
  9. INFLIXIMAB [Concomitant]
     Active Substance: INFLIXIMAB
  10. ANAKINRA [Concomitant]
     Active Substance: ANAKINRA
  11. TOFACITINIB [Concomitant]
     Active Substance: TOFACITINIB

REACTIONS (4)
  - Adrenal suppression [Unknown]
  - Takayasu^s arteritis [Unknown]
  - Hypertension [Unknown]
  - Off label use [Unknown]
